FAERS Safety Report 5118887-6 (Version None)
Quarter: 2006Q4

REPORT INFORMATION
  Report Type: 
  Country: None (occurrence: None)
  Receive Date: 20061002
  Receipt Date: 20060918
  Transmission Date: 20070319
  Serious: Yes (Life-Threatening)
  Sender: FDA-Public Use
  Company Number: FR-BOEHRINGER INGELHEIM PHARMACEUTICALS, INC.-2006-FF-00881FF

PATIENT
  Sex: Female
  Weight: 34 kg

DRUGS (6)
  1. SPIRIVA [Suspect]
     Indication: CHRONIC OBSTRUCTIVE PULMONARY DISEASE
     Route: 055
     Dates: start: 20060906, end: 20060906
  2. BRONCHODUAL [Suspect]
     Indication: CHRONIC OBSTRUCTIVE PULMONARY DISEASE
     Dosage: 4 CAPSULES DAILY
     Route: 055
  3. ESTREVA [Concomitant]
     Indication: OSTEOPOROSIS
     Route: 048
  4. LEVOTHYROXINE SODIUM [Concomitant]
     Indication: THYROID DISORDER
     Route: 048
  5. NEXIUM [Concomitant]
     Indication: OESOPHAGITIS
     Route: 048
  6. OXYGEN [Concomitant]
     Indication: CHRONIC RESPIRATORY FAILURE
     Route: 055

REACTIONS (1)
  - INCREASED BRONCHIAL SECRETION [None]
